FAERS Safety Report 8133194-5 (Version None)
Quarter: 2012Q1

REPORT INFORMATION
  Report Type: 
  Country: None (occurrence: None)
  Receive Date: 20120213
  Receipt Date: 20120206
  Transmission Date: 20120608
  Serious: Yes (Other)
  Sender: FDA-Public Use
  Company Number: PHHY2012CA005963

PATIENT
  Age: 69 Year
  Sex: Male

DRUGS (16)
  1. ACETAMINOPHEN [Concomitant]
     Dosage: UNK UKN, UNK
  2. LYRICA [Concomitant]
     Dosage: UNK UKN, UNK
  3. COLACE [Concomitant]
     Dosage: UNK UKN, UNK
  4. TIAZAC [Concomitant]
     Dosage: UNK UKN, UNK
  5. LIPITOR [Concomitant]
     Dosage: UNK UKN, UNK
  6. ZOLEDRONOC ACID [Suspect]
     Indication: OSTEOPOROSIS
     Dosage: 5 MG, UNK
     Route: 042
     Dates: start: 20111118
  7. ASPIRIN [Concomitant]
     Dosage: UNK UKN, UNK
  8. COZAAR [Concomitant]
     Dosage: UNK UKN, UNK
  9. TRAMADOL HYDROCHLORIDE/ACETAMINOPHEN [Concomitant]
     Dosage: UNK UKN, UNK
  10. METFORMIN HCL [Concomitant]
     Dosage: UNK UKN, UNK
  11. COUMADIN [Concomitant]
     Dosage: UNK UKN, UNK
  12. LASIX [Concomitant]
     Dosage: UNK UKN, UNK
  13. SENOKOT                                 /UNK/ [Concomitant]
     Dosage: UNK UKN, UNK
  14. CALCITE D [Concomitant]
     Dosage: UNK UKN, UNK
  15. DIABETA [Concomitant]
     Dosage: UNK UKN, UNK
  16. CYCLOBENZAPRINE HCL [Concomitant]
     Dosage: UNK UKN, UNK

REACTIONS (2)
  - ANAEMIA MACROCYTIC [None]
  - HYPERTHYROIDISM [None]
